FAERS Safety Report 21871407 (Version 1)
Quarter: 2023Q1

REPORT INFORMATION
  Report Type: Spontaneous
  Country: GB (occurrence: GB)
  Receive Date: 20230117
  Receipt Date: 20230117
  Transmission Date: 20230418
  Serious: Yes (Hospitalization)
  Sender: FDA-Public Use
  Company Number: GB-ZAMBON SWITZERLAND LTD.-2023GB000001

PATIENT

DRUGS (3)
  1. FOSFOMYCIN TROMETHAMINE [Suspect]
     Active Substance: FOSFOMYCIN TROMETHAMINE
     Indication: Urinary tract infection
     Dosage: UNKNOWN
     Route: 065
     Dates: start: 20221216, end: 20221217
  2. CLOPIDOGREL [Concomitant]
     Active Substance: CLOPIDOGREL BISULFATE
     Indication: Transient ischaemic attack
     Dosage: UNK
     Route: 065
     Dates: start: 20160620
  3. SIMVASTATIN [Concomitant]
     Active Substance: SIMVASTATIN
     Indication: Transient ischaemic attack
     Dosage: UNK
     Route: 065
     Dates: start: 20160620

REACTIONS (4)
  - Anal incontinence [Recovered/Resolved]
  - Urinary incontinence [Recovered/Resolved]
  - Diarrhoea [Recovered/Resolved]
  - Product use issue [Unknown]

NARRATIVE: CASE EVENT DATE: 20221216
